FAERS Safety Report 12334070 (Version 2)
Quarter: 2016Q2

REPORT INFORMATION
  Report Type: Report from Study
  Country: BR (occurrence: BR)
  Receive Date: 20160504
  Receipt Date: 20160525
  Transmission Date: 20160815
  Serious: Yes (Other)
  Sender: FDA-Public Use
  Company Number: BR-JNJFOC-20160426764

PATIENT
  Age: 53 Year
  Sex: Female

DRUGS (2)
  1. STELARA [Suspect]
     Active Substance: USTEKINUMAB
     Indication: PSORIASIS
     Route: 058
     Dates: start: 20150103, end: 20160425
  2. VIT-C [Concomitant]
     Route: 065

REACTIONS (4)
  - Rhinitis [Unknown]
  - Urinary tract infection [Unknown]
  - Exposure during pregnancy [Unknown]
  - Pain [Unknown]

NARRATIVE: CASE EVENT DATE: 20160425
